FAERS Safety Report 6784901-5 (Version None)
Quarter: 2010Q2

REPORT INFORMATION
  Report Type: 
  Country: None (occurrence: None)
  Receive Date: 20100622
  Receipt Date: 20100616
  Transmission Date: 20101027
  Serious: Yes (Death)
  Sender: FDA-Public Use
  Company Number: AU-ROXANE LABORATORIES, INC.-2010-DE-03325GD

PATIENT
  Age: 28 Year
  Sex: Male

DRUGS (6)
  1. OXAZEPAM [Suspect]
  2. TRAMADOL [Suspect]
  3. MIRTAZAPINE [Suspect]
  4. AMITRIPTYLINE [Suspect]
  5. AMPHETAMINE SULFATE [Suspect]
  6. DIAZEPAM [Suspect]

REACTIONS (3)
  - DRUG TOXICITY [None]
  - PULMONARY OEDEMA [None]
  - SEROTONIN SYNDROME [None]
